FAERS Safety Report 22657245 (Version 1)
Quarter: 2023Q2

REPORT INFORMATION
  Report Type: Report from Study
  Country: EG (occurrence: EG)
  Receive Date: 20230630
  Receipt Date: 20230630
  Transmission Date: 20230722
  Serious: Yes (Other)
  Sender: FDA-Public Use
  Company Number: EG-002147023-NVSC2023EG146899

PATIENT
  Age: 55 Year
  Sex: Male

DRUGS (25)
  1. ENTRESTO [Suspect]
     Active Substance: SACUBITRIL\VALSARTAN
     Indication: Cardiac failure
     Dosage: 1 DOSAGE FORM, BID (50 MG)
     Route: 048
     Dates: start: 202205, end: 202206
  2. ENTRESTO [Suspect]
     Active Substance: SACUBITRIL\VALSARTAN
     Dosage: 1 DOSAGE FORM, BID (200 MG, FOR ONE DAY)
     Route: 048
     Dates: start: 202209
  3. ENTRESTO [Suspect]
     Active Substance: SACUBITRIL\VALSARTAN
     Dosage: 0.5 DOSAGE FORM, BID (200 MG)
     Route: 065
     Dates: start: 202209, end: 202209
  4. ENTRESTO [Suspect]
     Active Substance: SACUBITRIL\VALSARTAN
     Dosage: 0.33 DOSAGE FORM, BID (200 MG, FOR 10 DAYS)
     Route: 065
     Dates: start: 202209
  5. ENTRESTO [Suspect]
     Active Substance: SACUBITRIL\VALSARTAN
     Dosage: 0.5 DOSAGE FORM, BID (100 MG)
     Route: 065
     Dates: start: 202210
  6. RANDIL [Concomitant]
     Indication: Arterial disorder
     Dosage: 0.5 DOSAGE FORM, BID (PREVIOUS REGIMEN)
     Route: 048
  7. RANDIL [Concomitant]
     Dosage: 1 DOSAGE FORM, BID
     Route: 048
     Dates: start: 202209
  8. DAPAGLIFLOZIN [Concomitant]
     Active Substance: DAPAGLIFLOZIN
     Indication: Cardiac failure
     Dosage: 1 DOSAGE FORM, QD
     Route: 048
     Dates: start: 202209
  9. DAPAGLIFLOZIN [Concomitant]
     Active Substance: DAPAGLIFLOZIN
     Indication: Diabetes mellitus
  10. LIPITOR [Concomitant]
     Active Substance: ATORVASTATIN CALCIUM
     Indication: Product used for unknown indication
     Dosage: UNK
     Route: 065
  11. METOPROLOL SUCCINATE [Concomitant]
     Active Substance: METOPROLOL SUCCINATE
     Indication: Blood pressure abnormal
     Dosage: 1 DOSAGE FORM, BID
     Route: 048
     Dates: start: 202209
  12. PANTOPRAZOLE SODIUM [Concomitant]
     Active Substance: PANTOPRAZOLE SODIUM
     Indication: Abdominal discomfort
     Dosage: 1 DOSAGE FORM, QD (ON AN EMPTY STOMACH)
     Route: 048
     Dates: start: 202209
  13. PLAVIX [Concomitant]
     Active Substance: CLOPIDOGREL BISULFATE
     Indication: Thrombosis prophylaxis
     Dosage: 1 DOSAGE FORM, QD
     Route: 048
     Dates: start: 202209
  14. OMEGA-3 ACIDS [Concomitant]
     Active Substance: OMEGA-3 FATTY ACIDS
     Indication: Hypovitaminosis
     Dosage: 1 DOSAGE FORM, QD (STARTED THREE OR FOUR YEARS AGO)
     Route: 048
  15. DINITRA [Concomitant]
     Indication: Angina pectoris
     Dosage: 1 DOSAGE FORM, QD (DURING EMERGENCIES WHEN NEEDED (AS PER PATIENT))
     Route: 060
     Dates: start: 202209
  16. DINITRA [Concomitant]
     Indication: Asphyxia
  17. DINITRA [Concomitant]
     Indication: Dyspepsia
  18. DINITRA [Concomitant]
     Indication: Gait disturbance
  19. NITRODERM [Concomitant]
     Active Substance: NITROGLYCERIN
     Indication: Angina pectoris
     Dosage: 1 DOSAGE FORM, QD (ONE PATCH LASTS FOR 16 HOURS)  DURING EMERGENCY (AS PER PATIENT)
     Route: 065
  20. NITRODERM [Concomitant]
     Active Substance: NITROGLYCERIN
     Indication: Asphyxia
  21. NITRODERM [Concomitant]
     Active Substance: NITROGLYCERIN
     Indication: Dyspepsia
  22. NITRODERM [Concomitant]
     Active Substance: NITROGLYCERIN
     Indication: Gait disturbance
  23. NITRODERM [Concomitant]
     Active Substance: NITROGLYCERIN
     Indication: Hypotension
  24. TORSEMIDE [Concomitant]
     Active Substance: TORSEMIDE
     Indication: Diuretic therapy
     Dosage: 1 DOSAGE FORM (EVERY OTHER DAY INSTEAD OF ONE TABLET ONCE DAILY)
     Route: 048
     Dates: start: 202209
  25. TORSEMIDE [Concomitant]
     Active Substance: TORSEMIDE
     Indication: Hypotension

REACTIONS (7)
  - Hypotension [Recovered/Resolved]
  - Asphyxia [Recovering/Resolving]
  - Haemoglobin increased [Not Recovered/Not Resolved]
  - Dyspepsia [Recovering/Resolving]
  - Gait disturbance [Recovering/Resolving]
  - Incorrect dose administered [Recovered/Resolved]
  - Wrong technique in product usage process [Recovered/Resolved]

NARRATIVE: CASE EVENT DATE: 20220901
